FAERS Safety Report 9095217 (Version 3)
Quarter: 2013Q2

REPORT INFORMATION
  Report Type: Report from Study
  Country: PL (occurrence: PL)
  Receive Date: 20130220
  Receipt Date: 20130412
  Transmission Date: 20140414
  Serious: Yes (Hospitalization)
  Sender: FDA-Public Use
  Company Number: PL-AMGEN-POLCT2013011717

PATIENT
  Age: 59 Year
  Sex: Male

DRUGS (11)
  1. ROMIPLOSTIM [Suspect]
     Indication: THROMBOCYTOPENIC PURPURA
     Dosage: 10 MG, QWK
     Route: 058
     Dates: start: 20100309
  2. HUMULIN M3 [Concomitant]
  3. GLUCOBAY [Concomitant]
     Dosage: 150 MG, UNK
  4. BISOCARD [Concomitant]
     Dosage: 2.5 MG, UNK
  5. AMLOPIN [Concomitant]
     Dosage: 10 MG, UNK
  6. VIVACE [Concomitant]
     Dosage: 10 MG, UNK
  7. MILURIT [Concomitant]
     Dosage: 100 MG, UNK
  8. KALIPOZ [Concomitant]
  9. PHLEBODIA [Concomitant]
     Dosage: 600 MG, UNK
  10. CALPEROS [Concomitant]
     Dosage: 1000 MG, UNK
  11. CONTROLOC [Concomitant]
     Dosage: 20 MG, UNK

REACTIONS (1)
  - Thrombocytopenia [Recovered/Resolved]
